FAERS Safety Report 10705582 (Version 3)
Quarter: 2015Q1

REPORT INFORMATION
  Report Type: Spontaneous
  Country: US (occurrence: US)
  Receive Date: 20150112
  Receipt Date: 20150203
  Transmission Date: 20150721
  Serious: No
  Sender: FDA-Public Use
  Company Number: US-GLAXOSMITHKLINE-A1074080A

PATIENT
  Sex: Female
  Weight: 48.1 kg

DRUGS (12)
  1. PROMACTA [Suspect]
     Active Substance: ELTROMBOPAG OLAMINE
     Indication: IMMUNE THROMBOCYTOPENIC PURPURA
     Dosage: 50MG, QD
     Route: 048
     Dates: start: 20140325
  2. CALCITROL [Concomitant]
     Active Substance: CALCITRIOL
  3. LEVOXYL [Concomitant]
     Active Substance: LEVOTHYROXINE SODIUM
  4. MECLIZINE [Concomitant]
     Active Substance: MECLIZINE\MECLIZINE HYDROCHLORIDE
  5. HYOSCYAMINE [Concomitant]
     Active Substance: HYOSCYAMINE
  6. PROMACTA [Suspect]
     Active Substance: ELTROMBOPAG OLAMINE
     Indication: THROMBOCYTOPENIA
  7. ATORVASTATIN [Concomitant]
     Active Substance: ATORVASTATIN
  8. LOPERAMIDE HYDROCHLORIDE. [Concomitant]
     Active Substance: LOPERAMIDE HYDROCHLORIDE
  9. HYOSCYAMINE ER [Concomitant]
  10. IMODIUM AD [Concomitant]
     Active Substance: LOPERAMIDE HYDROCHLORIDE
  11. TOPROL XL [Concomitant]
     Active Substance: METOPROLOL SUCCINATE
  12. SYNTHROID [Concomitant]
     Active Substance: LEVOTHYROXINE SODIUM

REACTIONS (5)
  - Fatigue [Unknown]
  - Visual acuity reduced [Unknown]
  - Device therapy [Unknown]
  - Hyperaesthesia [Unknown]
  - Chest discomfort [Unknown]
